FAERS Safety Report 21202392 (Version 1)
Quarter: 2022Q3

REPORT INFORMATION
  Report Type: Spontaneous
  Country: US (occurrence: US)
  Receive Date: 20220811
  Receipt Date: 20220811
  Transmission Date: 20221027
  Serious: No
  Sender: FDA-Public Use
  Company Number: US-OTSUKA-2021_046090

PATIENT
  Sex: Male

DRUGS (1)
  1. REXULTI [Suspect]
     Active Substance: BREXPIPRAZOLE
     Indication: Major depression
     Dosage: 0.5 MG, QD (ONCE DAILY AT BEDTIME)
     Route: 065
     Dates: start: 20201208

REACTIONS (2)
  - Mental disorder [Not Recovered/Not Resolved]
  - Confusional state [Not Recovered/Not Resolved]
